FAERS Safety Report 5679657-3 (Version None)
Quarter: 2008Q1

REPORT INFORMATION
  Report Type: 
  Country: None (occurrence: None)
  Receive Date: 20080325
  Receipt Date: 20080317
  Transmission Date: 20080703
  Serious: Yes (Disabling)
  Sender: FDA-Public Use
  Company Number: US-ALLERGAN-200502935

PATIENT
  Sex: Female
  Weight: 58.182 kg

DRUGS (3)
  1. RESTASIS [Suspect]
     Indication: DRY EYE
     Dosage: 2GTT, BID
     Route: 047
     Dates: start: 20040401, end: 20040501
  2. VITAMIN CAP [Concomitant]
     Indication: MEDICAL DIET
  3. ACTONEL [Concomitant]

REACTIONS (2)
  - AGEUSIA [None]
  - ANOSMIA [None]
